FAERS Safety Report 7593964-9 (Version None)
Quarter: 2011Q3

REPORT INFORMATION
  Report Type: 
  Country: None (occurrence: None)
  Receive Date: 20110706
  Receipt Date: 20110705
  Transmission Date: 20111222
  Serious: Yes (Other)
  Sender: FDA-Public Use
  Company Number: US-AMGEN-USASP2011033167

PATIENT
  Sex: Female

DRUGS (2)
  1. NPLATE [Suspect]
     Dates: start: 20110202, end: 20110306
  2. NPLATE [Suspect]
     Indication: IDIOPATHIC THROMBOCYTOPENIC PURPURA
     Dosage: 5 A?G/KG, UNK
     Dates: start: 20110202, end: 20110309

REACTIONS (1)
  - DRUG INEFFECTIVE [None]
